FAERS Safety Report 5280310-9 (Version None)
Quarter: 2007Q1

REPORT INFORMATION
  Report Type: 
  Country: None (occurrence: None)
  Receive Date: 20070329
  Receipt Date: 20070322
  Transmission Date: 20070707
  Serious: Yes (Death)
  Sender: FDA-Public Use
  Company Number: GB-GLAXOSMITHKLINE-B0463217A

PATIENT
  Age: 74 Year
  Sex: Male

DRUGS (2)
  1. BECONASE [Suspect]
     Indication: DRUG USE FOR UNKNOWN INDICATION
     Route: 045
  2. BECOTIDE [Suspect]
     Indication: ASTHMA
     Route: 055

REACTIONS (4)
  - HEPATIC NEOPLASM MALIGNANT [None]
  - ILL-DEFINED DISORDER [None]
  - OESOPHAGEAL ADENOCARCINOMA [None]
  - OESOPHAGEAL CANCER METASTATIC [None]
